FAERS Safety Report 7378325-X (Version None)
Quarter: 2011Q1

REPORT INFORMATION
  Report Type: 
  Country: None (occurrence: None)
  Receive Date: 20110323
  Receipt Date: 20110323
  Transmission Date: 20110831
  Serious: Yes (Life-Threatening, Other)
  Sender: FDA-Public Use
  Company Number: None

PATIENT
  Age: 89 Year
  Sex: Female
  Weight: 65.7716 kg

DRUGS (1)
  1. DIOVAN [Suspect]
     Indication: HYPERTENSION
     Dates: start: 20110217, end: 20110322

REACTIONS (8)
  - DIARRHOEA [None]
  - VISION BLURRED [None]
  - MEDICATION ERROR [None]
  - DRUG DISPENSING ERROR [None]
  - NAUSEA [None]
  - ASTHENIA [None]
  - DIZZINESS [None]
  - ATRIAL FIBRILLATION [None]
